FAERS Safety Report 9730459 (Version 2)
Quarter: 2013Q4

REPORT INFORMATION
  Report Type: Spontaneous
  Country: DK (occurrence: JP)
  Receive Date: 20131202
  Receipt Date: 20131202
  Transmission Date: 20140711
  Serious: Yes (Hospitalization)
  Sender: FDA-Public Use
  Company Number: JP-FRI-1000045325

PATIENT
  Age: 77 Year
  Sex: Female
  Weight: 44 kg

DRUGS (9)
  1. LEXAPRO [Suspect]
     Indication: DEPRESSION
     Dosage: 10 MG
     Route: 048
     Dates: start: 20130425, end: 20130425
  2. OPALMON [Concomitant]
     Route: 048
  3. MYSLEE [Concomitant]
     Route: 048
  4. DEPAS [Concomitant]
     Route: 048
  5. AMLODIN OD [Concomitant]
     Route: 048
  6. ONEALFA [Concomitant]
     Route: 048
  7. BAYASPIRIN [Concomitant]
     Route: 048
  8. CRESTOR [Concomitant]
     Route: 048
  9. OMEPRAL [Concomitant]
     Route: 048

REACTIONS (8)
  - Headache [Recovered/Resolved]
  - Nausea [Recovered/Resolved]
  - Serotonin syndrome [Unknown]
  - Muscular weakness [Unknown]
  - Abdominal pain upper [Unknown]
  - Thirst [Unknown]
  - Blood glucose increased [Unknown]
  - Blood bilirubin increased [Unknown]
